FAERS Safety Report 15489505 (Version 1)
Quarter: 2018Q4

REPORT INFORMATION
  Report Type: Spontaneous
  Country: FR (occurrence: FR)
  Receive Date: 20181011
  Receipt Date: 20181011
  Transmission Date: 20190205
  Serious: Yes (Death)
  Sender: FDA-Public Use
  Company Number: FR-SA-2018SA277552

PATIENT
  Age: 75 Year
  Sex: Female
  Weight: 38 kg

DRUGS (6)
  1. OXALIPLATINE DAKOTA PHARM [Suspect]
     Active Substance: OXALIPLATIN
     Indication: ADENOCARCINOMA OF COLON
     Dosage: UNK UNK, UNK
     Route: 042
     Dates: start: 20180627, end: 20180627
  2. G-CSF [Concomitant]
     Active Substance: GRANULOCYTE COLONY-STIMULATING FACTOR NOS
     Indication: NEUTROPENIA
     Dosage: UNK UNK, UNK
     Route: 042
     Dates: start: 20180627
  3. IRINOTECAN [Suspect]
     Active Substance: IRINOTECAN
     Indication: ADENOCARCINOMA OF COLON
     Dosage: UNK UNK, UNK
     Route: 042
     Dates: start: 20171110, end: 20180613
  4. BEVACIZUMAB. [Suspect]
     Active Substance: BEVACIZUMAB
     Indication: ADENOCARCINOMA OF COLON
     Dosage: UNK UNK, UNK
     Route: 042
     Dates: start: 20180627, end: 20180627
  5. ERBITUX [Suspect]
     Active Substance: CETUXIMAB
     Indication: ADENOCARCINOMA OF COLON
     Dosage: UNK UNK, UNK
     Route: 042
     Dates: start: 20171110, end: 20180613
  6. BISOPROLOL FUMARATE. [Concomitant]
     Active Substance: BISOPROLOL FUMARATE
     Indication: HYPERTENSION
     Dosage: 1.25 MG, UNK
     Route: 048

REACTIONS (3)
  - Renal tubular disorder [Fatal]
  - Diarrhoea [Fatal]
  - Stress cardiomyopathy [Fatal]

NARRATIVE: CASE EVENT DATE: 20180627
